FAERS Safety Report 8607865-8 (Version None)
Quarter: 2012Q3

REPORT INFORMATION
  Report Type: 
  Country: None (occurrence: None)
  Receive Date: 20120821
  Receipt Date: 20120820
  Transmission Date: 20120928
  Serious: Yes (Hospitalization, Other)
  Sender: FDA-Public Use
  Company Number: PHEH2006US05803

PATIENT
  Sex: Female
  Weight: 75.736 kg

DRUGS (37)
  1. VISTARIL [Concomitant]
  2. AREDIA [Suspect]
     Indication: BREAST CANCER METASTATIC
     Dosage: 90 MG, QW3
     Dates: start: 19980101
  3. TAXOL [Concomitant]
     Dates: start: 20050201
  4. HERCEPTIN [Concomitant]
     Indication: BREAST CANCER METASTATIC
     Dates: start: 20000701, end: 20001201
  5. HERCEPTIN [Concomitant]
     Dates: start: 20050201
  6. PRILOSEC [Concomitant]
     Dosage: 20 MG, QD
     Route: 048
  7. VITAMIN E [Concomitant]
     Dosage: 400 IU, QD
     Route: 048
  8. AROMASIN [Concomitant]
     Dosage: 25 MG, QD
     Route: 048
  9. PRINIVIL [Concomitant]
  10. MEVACOR [Concomitant]
     Indication: BLOOD CHOLESTEROL INCREASED
  11. COMPAZINE [Concomitant]
  12. ZOFRAN [Concomitant]
  13. COREG [Concomitant]
  14. ZOMETA [Suspect]
     Indication: BREAST CANCER METASTATIC
     Dates: start: 19980101
  15. RADIATION TREATMENT [Concomitant]
     Indication: BREAST CANCER METASTATIC
  16. NORVASC [Concomitant]
  17. LISINOPRIL [Concomitant]
  18. MIDRIN [Concomitant]
  19. PLAVIX [Concomitant]
  20. XELODA [Suspect]
  21. TAXOL [Concomitant]
     Indication: BREAST CANCER METASTATIC
     Dates: start: 20000701, end: 20001201
  22. SYNTHROID [Concomitant]
     Indication: HYPOTHYROIDISM
     Dosage: 0.1 MG, QD
     Route: 048
  23. LIPITOR [Concomitant]
     Dosage: 10 MG, QD
     Route: 048
  24. ACIPHEX [Concomitant]
  25. TORADOL [Concomitant]
  26. DARVOCET-N 50 [Concomitant]
  27. PROVERA [Concomitant]
  28. DIGOXIN [Concomitant]
  29. CALCIUM [Concomitant]
     Dosage: 600 MG, QD
     Route: 048
  30. COUMADIN [Concomitant]
     Dosage: 1 MG, QD
     Route: 048
  31. ZESTRIL [Concomitant]
     Indication: HYPERTENSION
     Dosage: 5 MG,
  32. DEMEROL [Concomitant]
  33. DALMANE [Concomitant]
  34. NITROGLYCERIN [Concomitant]
  35. TAMOXIFEN CITRATE [Concomitant]
     Dosage: 20 MG, QD
     Route: 048
     Dates: start: 19980101
  36. WARFARIN SODIUM [Concomitant]
  37. PREMARIN [Concomitant]

REACTIONS (51)
  - CARDIOMYOPATHY [None]
  - METASTASES TO LUNG [None]
  - BONE DISORDER [None]
  - DYSGEUSIA [None]
  - MUSCLE SPASMS [None]
  - PERICARDIAL EFFUSION [None]
  - CHEST PAIN [None]
  - DIZZINESS [None]
  - BUNDLE BRANCH BLOCK LEFT [None]
  - GINGIVAL BLEEDING [None]
  - GINGIVAL HYPERPLASIA [None]
  - ERYTHEMA [None]
  - GINGIVITIS [None]
  - INJURY [None]
  - GINGIVAL PAIN [None]
  - GINGIVAL SWELLING [None]
  - IMPAIRED HEALING [None]
  - ORAL DISCOMFORT [None]
  - PARAESTHESIA [None]
  - PAIN [None]
  - VASOSPASM [None]
  - PULMONARY MASS [None]
  - BONE SWELLING [None]
  - SYNCOPE [None]
  - AORTIC VALVE INCOMPETENCE [None]
  - OSTEONECROSIS OF JAW [None]
  - TOOTH FRACTURE [None]
  - TOOTHACHE [None]
  - PRIMARY SEQUESTRUM [None]
  - ANXIETY [None]
  - PLEURAL EFFUSION [None]
  - METASTASES TO BONE [None]
  - LARYNGEAL OEDEMA [None]
  - HYPOCALCAEMIA [None]
  - VOCAL CORD DISORDER [None]
  - ANGINA UNSTABLE [None]
  - LOSS OF CONSCIOUSNESS [None]
  - ELECTROCARDIOGRAM QT PROLONGED [None]
  - RECURRENT CANCER [None]
  - ROAD TRAFFIC ACCIDENT [None]
  - PAIN IN JAW [None]
  - ARTERIOSCLEROSIS [None]
  - RENAL CYST [None]
  - DENTAL CARIES [None]
  - MASS [None]
  - GALLBLADDER DISORDER [None]
  - BRUXISM [None]
  - BILIARY COLIC [None]
  - RIB FRACTURE [None]
  - SPINAL OSTEOARTHRITIS [None]
  - OEDEMA PERIPHERAL [None]
